FAERS Safety Report 5414304-7 (Version None)
Quarter: 2007Q3

REPORT INFORMATION
  Report Type: 
  Country: None (occurrence: None)
  Receive Date: 20070713
  Receipt Date: 20070516
  Transmission Date: 20080115
  Serious: Yes (Hospitalization)
  Sender: FDA-Public Use
  Company Number: US-JNJFOC-20061206657

PATIENT
  Age: 12 Year
  Sex: Female
  Weight: 55.7924 kg

DRUGS (6)
  1. ORTHO EVRA [Suspect]
     Indication: MENSTRUATION IRREGULAR
     Dosage: TRANSDERMAL
     Route: 062
     Dates: start: 20041201, end: 20050103
  2. GABITRIL [Concomitant]
  3. LAMICTAL [Concomitant]
  4. CARBATROL [Concomitant]
  5. STRATTERA (SYMPATHOMIMETICS) [Concomitant]
  6. SEROQUEL [Concomitant]

REACTIONS (1)
  - ISCHAEMIC CEREBRAL INFARCTION [None]
